FAERS Safety Report 6463644-1 (Version None)
Quarter: 2009Q4

REPORT INFORMATION
  Report Type: 
  Country: None (occurrence: None)
  Receive Date: 20091201
  Receipt Date: 20091120
  Transmission Date: 20100525
  Serious: Yes (Other)
  Sender: FDA-Public Use
  Company Number: PHEH2009US10902

PATIENT
  Sex: Male

DRUGS (3)
  1. EXJADE [Suspect]
     Indication: HAEMOCHROMATOSIS
     Dosage: 2500 MG, QD
     Route: 048
     Dates: start: 20061113
  2. EXJADE [Suspect]
     Indication: TRANSFUSION
  3. COUMADIN [Concomitant]

REACTIONS (1)
  - PNEUMONIA [None]
